FAERS Safety Report 18606888 (Version 2)
Quarter: 2020Q4

REPORT INFORMATION
  Report Type: Spontaneous
  Country: JP (occurrence: JP)
  Receive Date: 20201211
  Receipt Date: 20201223
  Transmission Date: 20210114
  Serious: Yes (Death, Hospitalization, Other)
  Sender: FDA-Public Use
  Company Number: JP-DSJP-DSJ-2020-137894AA

PATIENT
  Age: 75 Year
  Sex: Male

DRUGS (3)
  1. OLMETEC OD TABLETS 10MG [Suspect]
     Active Substance: OLMESARTAN MEDOXOMIL
     Indication: HYPERTENSION
     Dosage: 10 MG, QD
     Route: 048
  2. AMLODIPINE                         /00972402/ [Concomitant]
     Active Substance: AMLODIPINE BESYLATE
     Dosage: 5 MG, QD
     Route: 048
  3. LANSOPRAZOLE. [Concomitant]
     Active Substance: LANSOPRAZOLE
     Dosage: 15 MG, QD
     Route: 048

REACTIONS (5)
  - Thalamus haemorrhage [Unknown]
  - Mental impairment [Unknown]
  - Cerebral microhaemorrhage [Unknown]
  - Dysphagia [Unknown]
  - Pneumonia aspiration [Fatal]
